FAERS Safety Report 14565316 (Version 1)
Quarter: 2018Q1

REPORT INFORMATION
  Report Type: Report from Study
  Country: US (occurrence: US)
  Receive Date: 20180223
  Receipt Date: 20180223
  Transmission Date: 20180509
  Serious: Yes (Other)
  Sender: FDA-Public Use
  Company Number: US-ASTRAZENECA-2017SE55639

PATIENT
  Age: 32327 Day
  Sex: Female
  Weight: 47.6 kg

DRUGS (5)
  1. BRILINTA [Suspect]
     Active Substance: TICAGRELOR
     Indication: STENT PLACEMENT
     Route: 048
     Dates: start: 20170218
  2. ATENOLOL. [Suspect]
     Active Substance: ATENOLOL
     Indication: BLOOD PRESSURE ABNORMAL
     Route: 065
  3. LISINOPRIL. [Suspect]
     Active Substance: LISINOPRIL
     Indication: BLOOD PRESSURE ABNORMAL
     Route: 048
  4. LISINOPRIL. [Suspect]
     Active Substance: LISINOPRIL
     Indication: BLOOD PRESSURE ABNORMAL
     Route: 048
  5. ASPIRIN. [Concomitant]
     Active Substance: ASPIRIN
     Indication: CARDIAC DISORDER
     Route: 048
     Dates: start: 2013

REACTIONS (13)
  - Injection site haemorrhage [Unknown]
  - Coronary artery occlusion [Unknown]
  - Dysphagia [Unknown]
  - Weight decreased [Unknown]
  - Dyspnoea [Not Recovered/Not Resolved]
  - Haemorrhage [Recovered/Resolved]
  - Blindness [Unknown]
  - Dysuria [Unknown]
  - Blood pressure inadequately controlled [Unknown]
  - Ingrowing nail [Unknown]
  - Macular degeneration [Unknown]
  - Wound [Unknown]
  - Constipation [Not Recovered/Not Resolved]
